FAERS Safety Report 8964800 (Version 4)
Quarter: 2013Q2

REPORT INFORMATION
  Report Type: Spontaneous
  Country: US (occurrence: US)
  Receive Date: 20121213
  Receipt Date: 20130606
  Transmission Date: 20140414
  Serious: Yes (Hospitalization, Disabling, Other)
  Sender: FDA-Public Use
  Company Number: US-009507513-1212USA001806

PATIENT
  Sex: Female
  Weight: 53.52 kg

DRUGS (6)
  1. FOSAMAX [Suspect]
     Indication: OSTEOPENIA
     Dosage: 70 MG, QW
     Route: 048
     Dates: start: 1999, end: 200801
  2. FOSAMAX [Suspect]
     Dosage: 5 MG, QD
     Route: 048
     Dates: start: 199906
  3. ALENDRONATE SODIUM [Suspect]
     Indication: OSTEOPENIA
     Dosage: 70 MG, QW
     Route: 048
     Dates: start: 20080303, end: 201103
  4. CALCIUM (UNSPECIFIED) [Concomitant]
     Dosage: 1200 MG, QD
     Route: 048
     Dates: start: 1999
  5. VITAMIN D (UNSPECIFIED) [Concomitant]
     Dosage: 2000 MG, QD
     Route: 048
     Dates: start: 1999
  6. VITAMINS (UNSPECIFIED) [Concomitant]
     Route: 048

REACTIONS (9)
  - Femur fracture [Not Recovered/Not Resolved]
  - Intramedullary rod insertion [Unknown]
  - Haemorrhagic anaemia [Recovered/Resolved]
  - Fall [Not Recovered/Not Resolved]
  - Surgery [Unknown]
  - Basal cell carcinoma [Unknown]
  - Femur fracture [Not Recovered/Not Resolved]
  - Foreign body [Recovered/Resolved]
  - Premature menopause [Recovered/Resolved]
